FAERS Safety Report 25461163 (Version 1)
Quarter: 2025Q2

REPORT INFORMATION
  Report Type: Spontaneous
  Country: US (occurrence: US)
  Receive Date: 20250620
  Receipt Date: 20250620
  Transmission Date: 20250716
  Serious: No
  Sender: MALLINCKRODT
  Company Number: US-MALLINCKRODT-MNK202503777

PATIENT
  Sex: Male

DRUGS (8)
  1. CORTICOTROPIN [Suspect]
     Active Substance: CORTICOTROPIN
     Indication: Inflammation
     Route: 058
  2. CORTICOTROPIN [Suspect]
     Active Substance: CORTICOTROPIN
     Indication: Immune system disorder
  3. FILSPARI [Concomitant]
     Active Substance: SPARSENTAN
  4. VELTASSA [Concomitant]
     Active Substance: PATIROMER
  5. ALLOPURINOL [Concomitant]
     Active Substance: ALLOPURINOL
  6. COLCHICINE [Concomitant]
     Active Substance: COLCHICINE
  7. ROSUVASTATIN CALCIUM [Concomitant]
     Active Substance: ROSUVASTATIN CALCIUM
  8. AMLODIPINE BESYLATE [Concomitant]
     Active Substance: AMLODIPINE BESYLATE

REACTIONS (1)
  - Tremor [Unknown]
